FAERS Safety Report 6187900-X (Version None)
Quarter: 2009Q2

REPORT INFORMATION
  Report Type: 
  Country: None (occurrence: None)
  Receive Date: 20090511
  Receipt Date: 20090511
  Transmission Date: 20091009
  Serious: Yes (Death)
  Sender: FDA-Public Use
  Company Number: None

PATIENT
  Age: 66 Year
  Sex: Male
  Weight: 109 kg

DRUGS (8)
  1. CARDIOPLEGIC [Suspect]
     Indication: CARDIOPLEGIA
     Dosage: 12225 ML X 1
     Dates: start: 20090422
  2. HEPARIN [Concomitant]
  3. EPINEPHRINE [Concomitant]
  4. VANCOMYCIN HCL [Concomitant]
  5. THROMBIN LOCAL SOLUTION [Concomitant]
  6. PRBC IRRIGATION [Concomitant]
  7. TOBRAMYCIN [Concomitant]
  8. BACITRACIN [Concomitant]

REACTIONS (1)
  - CORONARY ARTERY OCCLUSION [None]
